FAERS Safety Report 9198201 (Version 2)
Quarter: 2013Q2

REPORT INFORMATION
  Report Type: Spontaneous
  Country: US (occurrence: US)
  Receive Date: 20130329
  Receipt Date: 20130501
  Transmission Date: 20140414
  Serious: Yes (Hospitalization)
  Sender: FDA-Public Use
  Company Number: US-BIOGENIDEC-2013BI027147

PATIENT
  Age: 43 Year
  Sex: Female
  Weight: 111 kg

DRUGS (9)
  1. AVONEX [Suspect]
     Indication: RELAPSING-REMITTING MULTIPLE SCLEROSIS
     Route: 030
     Dates: start: 1998
  2. METHYLPHENIDATE [Concomitant]
     Indication: RELAPSING-REMITTING MULTIPLE SCLEROSIS
     Route: 048
  3. OMEPRAZOLE [Concomitant]
     Route: 048
  4. TIZANIDINE [Concomitant]
     Route: 048
  5. ARICEPT [Concomitant]
     Route: 048
  6. LEXAPRO [Concomitant]
     Route: 048
  7. CALCIUM 600 +D [Concomitant]
     Route: 048
  8. CYANOCOBALAMIN [Concomitant]
     Route: 048
  9. TOPOMAX [Concomitant]
     Route: 048

REACTIONS (7)
  - Muscle strain [Unknown]
  - Hiatus hernia [Unknown]
  - Fatigue [Unknown]
  - Cholecystitis chronic [Recovered/Resolved]
  - Cholelithiasis [Recovered/Resolved]
  - Procedural pain [Not Recovered/Not Resolved]
  - Influenza like illness [Not Recovered/Not Resolved]
